FAERS Safety Report 17477367 (Version 3)
Quarter: 2020Q3

REPORT INFORMATION
  Report Type: Other
  Country: FR (occurrence: FR)
  Receive Date: 20200229
  Receipt Date: 20200915
  Transmission Date: 20201102
  Serious: Yes (Death, Life-Threatening, Hospitalization)
  Sender: FDA-Public Use
  Company Number: FR-ROCHE-2556923

PATIENT
  Age: 55 Year
  Sex: Male
  Weight: 64.5 kg

DRUGS (11)
  1. TRANXENE [Concomitant]
     Active Substance: CLORAZEPATE DIPOTASSIUM
  2. CORTANCYL [Concomitant]
     Active Substance: PREDNISONE
  3. XANAX [Concomitant]
     Active Substance: ALPRAZOLAM
  4. HYDROCORTISONE. [Concomitant]
     Active Substance: HYDROCORTISONE
     Dates: start: 20190602
  5. PHYSIOLOGICAL SALINE [Concomitant]
     Dosage: NEBULIZATIONS
     Dates: start: 20190906
  6. ATEZOLIZUMAB. [Suspect]
     Active Substance: ATEZOLIZUMAB
     Indication: NEOPLASM MALIGNANT
     Dosage: DATE OF MOST RECENT DOSE (1200 MG) OF ATEZOLIZUMAB PRIOR TO SAE ONSET: 27/SEP/2019
     Route: 042
     Dates: start: 20190906
  7. ATEZOLIZUMAB. [Suspect]
     Active Substance: ATEZOLIZUMAB
     Route: 042
     Dates: start: 20190927
  8. BISOPROLOL [Concomitant]
     Active Substance: BISOPROLOL
     Indication: ARRHYTHMIA
     Dates: start: 20190927
  9. CHOLECALCIFEROL [Concomitant]
     Active Substance: CHOLECALCIFEROL
     Indication: DYSLIPIDAEMIA
  10. SERETIDE [Concomitant]
     Active Substance: FLUTICASONE PROPIONATE\SALMETEROL XINAFOATE
     Dates: start: 20180830
  11. SPIRIVA [Concomitant]
     Active Substance: TIOTROPIUM BROMIDE MONOHYDRATE
     Dates: start: 20180830

REACTIONS (1)
  - Tumour hyperprogression [Not Recovered/Not Resolved]

NARRATIVE: CASE EVENT DATE: 20191006
